FAERS Safety Report 23910133 (Version 1)
Quarter: 2024Q2

REPORT INFORMATION
  Report Type: Spontaneous
  Country: FR (occurrence: FR)
  Receive Date: 20240528
  Receipt Date: 20240528
  Transmission Date: 20240715
  Serious: Yes (Other)
  Sender: FDA-Public Use
  Company Number: None

PATIENT
  Age: 71 Year
  Sex: Male
  Weight: 130 kg

DRUGS (5)
  1. LINEZOLID [Suspect]
     Active Substance: LINEZOLID
     Indication: Bacterial infection
     Dosage: 600MG X2 /D
     Route: 042
     Dates: start: 20240423, end: 20240425
  2. PIPERACILLIN AND TAZOBACTAM [Suspect]
     Active Substance: PIPERACILLIN SODIUM\TAZOBACTAM SODIUM
     Indication: Infection
     Dosage: 4GX3/J?12 GRAM PER 100GM
     Route: 042
     Dates: start: 20240422, end: 20240426
  3. SUFENTANIL CITRATE [Suspect]
     Active Substance: SUFENTANIL CITRATE
     Indication: Anaesthesia
     Route: 042
     Dates: start: 20240423, end: 20240426
  4. IOMERON [Suspect]
     Active Substance: IOMEPROL
     Indication: Computerised tomogram abdomen
     Route: 042
     Dates: start: 20240422, end: 20240422
  5. PROPOFOL LIPURO [Suspect]
     Active Substance: PROPOFOL
     Indication: Anaesthesia
     Route: 042
     Dates: start: 20240423, end: 20240426

REACTIONS (2)
  - Acute generalised exanthematous pustulosis [Recovered/Resolved]
  - Eosinophilia [Recovered/Resolved]

NARRATIVE: CASE EVENT DATE: 20240425
